FAERS Safety Report 7064740-0 (Version None)
Quarter: 2010Q4

REPORT INFORMATION
  Report Type: 
  Country: None (occurrence: None)
  Receive Date: 20101022
  Receipt Date: 20101022
  Transmission Date: 20110411
  Serious: Yes (Death, Hospitalization, Other)
  Sender: FDA-Public Use
  Company Number: None

PATIENT
  Sex: Female
  Weight: 52.1637 kg

DRUGS (1)
  1. PROCRIT [Suspect]
     Indication: HAEMOGLOBIN DECREASED
     Dates: start: 20090301, end: 20100801

REACTIONS (1)
  - DEATH [None]
